FAERS Safety Report 12433232 (Version 2)
Quarter: 2016Q3

REPORT INFORMATION
  Report Type: Report from Study
  Country: US (occurrence: US)
  Receive Date: 20160603
  Receipt Date: 20160701
  Transmission Date: 20161109
  Serious: Yes (Hospitalization, Other)
  Sender: FDA-Public Use
  Company Number: US-GILEAD-2016-0216560

PATIENT
  Age: 51 Year
  Sex: Female

DRUGS (2)
  1. COUMADIN [Concomitant]
     Active Substance: WARFARIN SODIUM
  2. AMBRISENTAN [Suspect]
     Active Substance: AMBRISENTAN
     Indication: SYSTEMIC SCLERODERMA
     Dosage: 5 MG, QD
     Route: 065
     Dates: start: 20151005

REACTIONS (6)
  - Raynaud^s phenomenon [Unknown]
  - Off label use [Not Recovered/Not Resolved]
  - Dyspnoea [Unknown]
  - Cardiac flutter [Unknown]
  - Localised infection [Unknown]
  - Central venous catheterisation [Unknown]

NARRATIVE: CASE EVENT DATE: 20151005
